FAERS Safety Report 26012140 (Version 1)
Quarter: 2025Q4

REPORT INFORMATION
  Report Type: Spontaneous
  Country: CN (occurrence: CN)
  Receive Date: 20251107
  Receipt Date: 20251107
  Transmission Date: 20260117
  Serious: Yes (Hospitalization, Other)
  Sender: ELI LILLY AND COMPANY
  Company Number: CN-ELI_LILLY_AND_COMPANY-CN202511000851

PATIENT
  Age: 53 Year
  Sex: Male
  Weight: 68 kg

DRUGS (3)
  1. GEMCITABINE HYDROCHLORIDE [Suspect]
     Active Substance: GEMCITABINE HYDROCHLORIDE
     Indication: Cholangiocarcinoma
     Dosage: 1.4 G, SINGLE (ONCE A DAY)
     Route: 041
     Dates: start: 20250702, end: 20250702
  2. CAPECITABINE [Concomitant]
     Active Substance: CAPECITABINE
     Indication: Product used for unknown indication
     Dosage: 3.5 G, OTHER (1.5 G IN MORNING AND 2 G IN EVENING EVERY THREE WEEK)
     Route: 048
  3. SODIUM CHLORIDE [Concomitant]
     Active Substance: SODIUM CHLORIDE
     Indication: Product used for unknown indication
     Dosage: 250 ML, SINGLE (ONCE A DAY)
     Route: 041
     Dates: start: 20250702, end: 20250702

REACTIONS (3)
  - Liver function test abnormal [Recovering/Resolving]
  - Myelosuppression [Recovering/Resolving]
  - Alanine aminotransferase increased [Recovering/Resolving]
